APPROVED DRUG PRODUCT: DARBID
Active Ingredient: ISOPROPAMIDE IODIDE
Strength: EQ 5MG BASE
Dosage Form/Route: TABLET;ORAL
Application: N010744 | Product #001
Applicant: GLAXOSMITHKLINE
Approved: Approved Prior to Jan 1, 1982 | RLD: No | RS: No | Type: DISCN